FAERS Safety Report 4855244-1 (Version None)
Quarter: 2005Q4

REPORT INFORMATION
  Report Type: 
  Country: None (occurrence: None)
  Receive Date: 20051215
  Receipt Date: 20050722
  Transmission Date: 20060501
  Serious: Yes (Hospitalization)
  Sender: FDA-Public Use
  Company Number: US-MERCK-0507USA03837

PATIENT
  Age: 68 Year
  Sex: Female
  Weight: 62 kg

DRUGS (5)
  1. VIOXX [Suspect]
     Indication: ARTHRALGIA
     Route: 048
     Dates: start: 20030101, end: 20041001
  2. PREMARIN [Concomitant]
     Route: 065
  3. SYNTHROID [Concomitant]
     Route: 065
  4. CLARINEX [Concomitant]
     Route: 065
  5. AMITRIPTYLINE HYDROCHLORIDE [Concomitant]
     Route: 065

REACTIONS (8)
  - CEREBROVASCULAR ACCIDENT [None]
  - DEPRESSION [None]
  - HYPERTENSION [None]
  - MICROANGIOPATHY [None]
  - MULTIPLE SCLEROSIS [None]
  - POLYTRAUMATISM [None]
  - TRANSIENT ISCHAEMIC ATTACK [None]
  - UPPER LIMB FRACTURE [None]
